FAERS Safety Report 5201787-0 (Version None)
Quarter: 2006Q4

REPORT INFORMATION
  Report Type: 
  Country: None (occurrence: None)
  Receive Date: 20061002
  Receipt Date: 20050930
  Transmission Date: 20070319
  Serious: Yes (Other)
  Sender: FDA-Public Use
  Company Number: 2005VX000567

PATIENT
  Age: 46 Year
  Sex: Female

DRUGS (1)
  1. EFUDEX [Suspect]
     Indication: PAPILLOMA VIRAL INFECTION
     Dosage: 0.3 DF;QW;TOP
     Route: 061
     Dates: start: 19880101

REACTIONS (1)
  - VULVOVAGINAL ADENOSIS [None]
